FAERS Safety Report 6596542-3 (Version None)
Quarter: 2010Q1

REPORT INFORMATION
  Report Type: 
  Country: None (occurrence: None)
  Receive Date: 20100222
  Receipt Date: 20100222
  Transmission Date: 20100710
  Serious: Yes (Other)
  Sender: FDA-Public Use
  Company Number: None

PATIENT
  Sex: Female
  Weight: 126.4 kg

DRUGS (2)
  1. LAMOTRIGINE [Suspect]
     Indication: DEPRESSED MOOD
     Dosage: 2 X 25 MG LAMOTRIGINE 2 BID 047
     Route: 048
     Dates: start: 20070301
  2. ABILIFY [Suspect]
     Indication: SCHIZOPHRENIA
     Dosage: 15 MG ABILIFY HOS 047
     Route: 048

REACTIONS (10)
  - BLOOD PRESSURE INCREASED [None]
  - DIZZINESS [None]
  - EYE ROLLING [None]
  - HEADACHE [None]
  - OEDEMA PERIPHERAL [None]
  - PAIN [None]
  - RASH [None]
  - TINNITUS [None]
  - VERTIGO [None]
  - WEIGHT GAIN POOR [None]
